FAERS Safety Report 8809583 (Version 2)
Quarter: 2013Q1

REPORT INFORMATION
  Report Type: Report from Study
  Country: JP (occurrence: JP)
  Receive Date: 20120926
  Receipt Date: 20130201
  Transmission Date: 20140127
  Serious: Yes (Other)
  Sender: FDA-Public Use
  Company Number: JP-VERTEX PHARMACEUTICAL INC.-AE-2012-007173

PATIENT
  Age: 61 Year
  Sex: Female

DRUGS (17)
  1. VX-950 (TELAPREVIR) [Suspect]
     Indication: CHRONIC HEPATITIS C
     Dosage: 1500 MG, QD
     Route: 048
     Dates: start: 20120321, end: 20120529
  2. VX-950 (TELAPREVIR) [Suspect]
     Dosage: 1000 MG, QD
     Route: 048
     Dates: start: 20120530, end: 20120605
  3. RIBAVIRIN [Suspect]
     Indication: CHRONIC HEPATITIS C
     Dosage: 600 MG, QD
     Route: 048
     Dates: start: 20120321, end: 20120327
  4. RIBAVIRIN [Suspect]
     Dosage: 200 MG, QD
     Route: 048
     Dates: start: 20120328, end: 20120605
  5. RIBAVIRIN [Suspect]
     Dosage: 200 MG, QD
     Route: 048
     Dates: start: 20120620, end: 20120626
  6. RIBAVIRIN [Suspect]
     Dosage: 400 MG, QD
     Route: 048
     Dates: start: 20120627, end: 20120904
  7. PEGINTRON [Suspect]
     Indication: CHRONIC HEPATITIS C
     Dosage: 1.33 ?G/KG, QW
     Route: 058
     Dates: start: 20120321
  8. PEGINTRON [Suspect]
     Dosage: 30 ?G/KG, QW
     Route: 058
     Dates: start: 20120411
  9. PEGINTRON [Suspect]
     Dosage: 40 ?G/KG, QW
     Route: 058
     Dates: start: 20120425
  10. PEGINTRON [Suspect]
     Dosage: 0.89 ?G/KG, QW
     Route: 058
     Dates: end: 20120605
  11. PEGINTRON [Suspect]
     Dosage: 0.89 ?G/KG, QW
     Route: 058
     Dates: start: 20120620, end: 20120703
  12. PEGINTRON [Suspect]
     Dosage: 1.33 ?G/KG, QW
     Route: 058
     Dates: start: 20120704, end: 20120828
  13. PEGINTRON [Suspect]
     Dosage: 0.89 ?G/KG, QW
     Route: 058
     Dates: start: 20120829, end: 20120904
  14. ALLEGRA [Concomitant]
     Dosage: 120 MG, QD
     Route: 048
     Dates: start: 20120326, end: 20120401
  15. ANTEBATE [Concomitant]
     Dosage: UNK, PRN
     Route: 051
     Dates: start: 20120326, end: 20120401
  16. RIKKUNSHI-TO [Concomitant]
     Dosage: 7.5 G, QD
     Route: 048
     Dates: start: 20120404, end: 20120410
  17. GASMOTIN [Concomitant]
     Dosage: 15 MG, QD
     Route: 048
     Dates: start: 20120411, end: 20120619

REACTIONS (4)
  - Haemoglobin decreased [Recovered/Resolved]
  - Exposure during pregnancy [Unknown]
  - Neutrophil count decreased [Recovered/Resolved]
  - Platelet count decreased [Unknown]
